FAERS Safety Report 10606258 (Version 3)
Quarter: 2016Q2

REPORT INFORMATION
  Report Type: Spontaneous
  Country: PL (occurrence: PL)
  Receive Date: 20141125
  Receipt Date: 20160427
  Transmission Date: 20160815
  Serious: Yes (Life-Threatening, Other)
  Sender: FDA-Public Use
  Company Number: PL-ROCHE-1494801

PATIENT
  Age: 58 Year
  Sex: Male

DRUGS (7)
  1. BUDESONIDE/FORMOTEROL [Concomitant]
     Active Substance: BUDESONIDE\FORMOTEROL
  2. XOLAIR [Suspect]
     Active Substance: OMALIZUMAB
     Route: 058
     Dates: start: 201507
  3. SALBUTAMOL [Concomitant]
     Active Substance: ALBUTEROL
     Dosage: NEBULIZATION
     Route: 065
  4. EUPHYLLINA [Concomitant]
  5. XOLAIR [Suspect]
     Active Substance: OMALIZUMAB
     Route: 058
     Dates: start: 201411
  6. XOLAIR [Suspect]
     Active Substance: OMALIZUMAB
     Indication: ASTHMA
     Route: 058
     Dates: start: 201304
  7. DIAPREL [Concomitant]
     Active Substance: GLICLAZIDE
     Indication: DIABETES MELLITUS
     Dosage: 30 MG FASTING
     Route: 065

REACTIONS (11)
  - Wheezing [Recovered/Resolved]
  - Wheezing [Recovering/Resolving]
  - Blood pressure increased [Recovered/Resolved]
  - Dyspnoea [Recovered/Resolved]
  - Asthma [Recovering/Resolving]
  - Loss of consciousness [Recovering/Resolving]
  - Loss of consciousness [Recovered/Resolved]
  - Arthralgia [Unknown]
  - Cardiac arrest [Recovered/Resolved]
  - Blood pressure increased [Recovering/Resolving]
  - Pallor [Recovering/Resolving]

NARRATIVE: CASE EVENT DATE: 201411
